FAERS Safety Report 6892897-0 (Version None)
Quarter: 2010Q3

REPORT INFORMATION
  Report Type: 
  Country: None (occurrence: None)
  Receive Date: 20100731
  Receipt Date: 20081103
  Transmission Date: 20110219
  Serious: No
  Sender: FDA-Public Use
  Company Number: US-PFIZER INC-2008092867

PATIENT
  Sex: Male

DRUGS (13)
  1. NORVASC [Suspect]
     Indication: HYPERTENSION
  2. ASPIRINE [Concomitant]
  3. EPOGEN [Concomitant]
  4. INSULIN [Concomitant]
  5. FERROUS SULFATE TAB [Concomitant]
  6. DIGOXIN [Concomitant]
  7. LASIX [Concomitant]
  8. METOPROLOL TARTRATE [Concomitant]
  9. RENAGEL [Concomitant]
  10. ROCALTROL [Concomitant]
  11. DOCUSATE [Concomitant]
  12. VITAMIN D [Concomitant]
  13. ZAROXOLYN [Concomitant]

REACTIONS (1)
  - OEDEMA PERIPHERAL [None]
